FAERS Safety Report 24866275 (Version 3)
Quarter: 2025Q1

REPORT INFORMATION
  Report Type: Spontaneous
  Country: GB (occurrence: GB)
  Receive Date: 20250121
  Receipt Date: 20250220
  Transmission Date: 20250409
  Serious: Yes (Disabling, Other)
  Sender: ALKEM
  Company Number: None

PATIENT
  Age: 37 Year
  Sex: Female
  Weight: 83 kg

DRUGS (2)
  1. GABAPENTIN [Suspect]
     Active Substance: GABAPENTIN
     Indication: Analgesic therapy
     Route: 065
     Dates: start: 20241112, end: 20241219
  2. AMITRIPTYLINE [Suspect]
     Active Substance: AMITRIPTYLINE
     Indication: Product used for unknown indication
     Route: 065

REACTIONS (4)
  - Sensory loss [Not Recovered/Not Resolved]
  - Neuropathy peripheral [Unknown]
  - Urinary retention [Unknown]
  - Dysphagia [Unknown]

NARRATIVE: CASE EVENT DATE: 20241114
